FAERS Safety Report 5593123-5 (Version None)
Quarter: 2008Q1

REPORT INFORMATION
  Report Type: 
  Country: None (occurrence: None)
  Receive Date: 20080114
  Receipt Date: 20080114
  Transmission Date: 20080703
  Serious: Yes (Hospitalization)
  Sender: FDA-Public Use
  Company Number: None

PATIENT
  Age: 74 Year
  Sex: Male

DRUGS (2)
  1. ASPIRIN [Suspect]
     Indication: CORONARY ARTERIAL STENT INSERTION
     Dosage: 325MG  EVERY DAY  PO
     Route: 048
     Dates: start: 20071130, end: 20071212
  2. CLOPIDOGREL [Suspect]
     Indication: CORONARY ARTERIAL STENT INSERTION
     Dosage: 75MG  EVERY DAY  PO
     Route: 048
     Dates: start: 20071130, end: 20071212

REACTIONS (1)
  - GASTROINTESTINAL HAEMORRHAGE [None]
